FAERS Safety Report 8552402-X (Version None)
Quarter: 2012Q3

REPORT INFORMATION
  Report Type: 
  Country: None (occurrence: None)
  Receive Date: 20120731
  Receipt Date: 20120719
  Transmission Date: 20120928
  Serious: No
  Sender: FDA-Public Use
  Company Number: US-JNJFOC-20120710371

PATIENT
  Sex: Female
  Weight: 56.7 kg

DRUGS (7)
  1. DURAGESIC-100 [Suspect]
     Indication: FIBROMYALGIA
     Route: 062
     Dates: start: 20100101
  2. DURAGESIC-100 [Suspect]
     Indication: SYSTEMIC LUPUS ERYTHEMATOSUS
     Route: 062
     Dates: start: 20100101
  3. DURAGESIC-100 [Suspect]
     Route: 062
     Dates: start: 20090101, end: 20100101
  4. DURAGESIC-100 [Suspect]
     Indication: ARTHRITIS
     Route: 062
     Dates: start: 20090101, end: 20100101
  5. DURAGESIC-100 [Suspect]
     Route: 062
     Dates: start: 20090101, end: 20100101
  6. DURAGESIC-100 [Suspect]
     Route: 062
     Dates: start: 20100101
  7. VICODIN [Concomitant]
     Indication: BREAKTHROUGH PAIN
     Route: 048
     Dates: start: 20090401

REACTIONS (4)
  - WRONG TECHNIQUE IN DRUG USAGE PROCESS [None]
  - PRODUCT QUALITY ISSUE [None]
  - DRUG ADMINISTERED AT INAPPROPRIATE SITE [None]
  - DRUG INEFFECTIVE [None]
